FAERS Safety Report 7996738-X (Version None)
Quarter: 2011Q4

REPORT INFORMATION
  Report Type: 
  Country: None (occurrence: None)
  Receive Date: 20111221
  Receipt Date: 20111209
  Transmission Date: 20120403
  Serious: Yes (Death)
  Sender: FDA-Public Use
  Company Number: JP-GENZYME-THYM-1002816

PATIENT
  Sex: Female
  Weight: 63 kg

DRUGS (61)
  1. ITRACONAZOLE [Concomitant]
     Indication: PROPHYLAXIS
     Dosage: UNK
     Dates: start: 20110806, end: 20110928
  2. LANSOPRAZOLE [Concomitant]
     Indication: PROPHYLAXIS AGAINST GASTROINTESTINAL ULCER
     Dosage: UNK
     Dates: start: 20110806, end: 20111005
  3. ALENDRONATE SODIUM [Concomitant]
     Indication: OSTEOPOROSIS PROPHYLAXIS
     Dosage: UNK
     Dates: start: 20110811, end: 20110929
  4. DANAPAROID SODIUM [Concomitant]
     Indication: DISSEMINATED INTRAVASCULAR COAGULATION
     Dosage: UNK
     Dates: start: 20111012, end: 20111015
  5. MANGANESE CHLORIDE_ZINC SULFATE COMBINED DRUG [Concomitant]
     Indication: HYPOPHAGIA
     Dosage: UNK
     Dates: start: 20111013, end: 20111019
  6. CYCLOSPORINE [Concomitant]
     Indication: APLASTIC ANAEMIA
     Dosage: UNK
     Dates: start: 20110806, end: 20110920
  7. ALBUTEROL SULFATE AUTOHALER [Concomitant]
     Indication: ANTIFUNGAL PROPHYLAXIS
     Dosage: UNK
     Dates: start: 20110811, end: 20110811
  8. ACETAMINOPHEN [Concomitant]
     Indication: PYREXIA
     Dosage: UNK
     Dates: start: 20110815, end: 20110928
  9. PREDNISOLONE [Concomitant]
     Indication: APLASTIC ANAEMIA
     Dosage: UNK
     Dates: start: 20110820, end: 20111012
  10. INSULIN GLARGINE [Concomitant]
     Indication: DIABETES MELLITUS
     Dosage: UNK
     Dates: start: 20110824, end: 20110925
  11. FILGRASTIM [Concomitant]
     Indication: APLASTIC ANAEMIA
     Dosage: UNK
     Dates: start: 20110908, end: 20110927
  12. MIXED AMINO ACID_CARBOHYDRATE_ELECTROLYTE_VITAMIN COMBINED DRUG [Concomitant]
     Dosage: UNK
     Dates: start: 20110929, end: 20111006
  13. FAMOTIDINE [Concomitant]
     Indication: HYPOPHAGIA
     Dosage: UNK
     Dates: start: 20110929, end: 20111006
  14. HYDROXYZINE [Concomitant]
     Indication: INSOMNIA
     Dosage: UNK
     Dates: start: 20110930, end: 20111019
  15. MULTIPLE VITAMIN FOR TOTAL PARENTERAL NUTRITION [Concomitant]
     Indication: HYPOPHAGIA
     Dosage: UNK
     Dates: start: 20111013, end: 20111019
  16. FLURBIPROFEN [Concomitant]
     Indication: PYREXIA
     Dosage: UNK
     Dates: start: 20111012, end: 20111019
  17. LOXOPROFEN SODIUM [Concomitant]
     Indication: PYREXIA
     Dosage: UNK
     Dates: start: 20110929, end: 20110929
  18. REBAMIPIDE [Concomitant]
     Indication: PROPHYLAXIS AGAINST GASTROINTESTINAL ULCER
     Dosage: UNK
     Dates: start: 20110929, end: 20110929
  19. ALBUMIN (HUMAN) [Concomitant]
     Indication: OEDEMA
     Dosage: UNK
     Dates: start: 20110927, end: 20111006
  20. FAMOTIDINE [Concomitant]
     Indication: PROPHYLAXIS AGAINST GASTROINTESTINAL ULCER
     Dosage: UNK
     Dates: start: 20111003, end: 20111003
  21. BACTRIM [Concomitant]
     Indication: ANTIFUNGAL PROPHYLAXIS
     Dosage: UNK
     Dates: start: 20111007, end: 20111011
  22. BROTIZOLAM [Concomitant]
     Indication: INSOMNIA
     Dosage: UNK
     Dates: start: 20110821, end: 20111005
  23. NIFEDIPINE [Concomitant]
     Indication: HYPERTENSION
     Dosage: UNK
     Dates: start: 20111006, end: 20111011
  24. METHYLPREDNISOLONE SODIUM SUCCINATE [Concomitant]
     Indication: PNEUMONIA
     Dosage: UNK
     Dates: start: 20110815, end: 20110819
  25. MIXED AMINO ACID-CARBOHYDRATE-ELECTROLYTE-VITAMIN COMBINED DRUG [Concomitant]
     Indication: HYPOPHAGIA
     Dosage: UNK
     Dates: start: 20110927, end: 20111006
  26. GANCICLOVIR [Concomitant]
     Dosage: UNK
     Dates: start: 20110929, end: 20111019
  27. CHLORPHENIRAMINE MALEATE [Concomitant]
     Indication: PROPHYLAXIS
     Dosage: UNK
     Dates: start: 20110929, end: 20111119
  28. THYMOGLOBULIN [Suspect]
     Indication: APLASTIC ANAEMIA
     Dosage: 225 MG, QD
     Route: 042
     Dates: start: 20110815, end: 20110819
  29. CYCLOSPORINE [Concomitant]
     Indication: APLASTIC ANAEMIA
     Dosage: 200 MG, UNK
     Dates: start: 20110806, end: 20110920
  30. ACYCLOVIR [Concomitant]
     Indication: PROPHYLAXIS
     Dosage: UNK
     Dates: start: 20110806, end: 20110921
  31. ZOLPIDEM TARTRATE [Concomitant]
     Indication: INSOMNIA
     Dosage: UNK
     Dates: start: 20110816, end: 20111017
  32. GANCICLOVIR [Concomitant]
     Indication: CYTOMEGALOVIRUS INFECTION
     Dosage: UNK
     Dates: start: 20110914, end: 20110914
  33. FOSCARNET SODIUM [Concomitant]
     Indication: CYTOMEGALOVIRUS INFECTION
     Dosage: UNK
     Dates: start: 20110917, end: 20110926
  34. ACETATED RINGER [Concomitant]
     Indication: HYPOPHAGIA
     Dosage: UNK
     Dates: start: 20110917, end: 20110926
  35. DORIPENEM HYDRATE [Concomitant]
     Indication: SEPSIS
     Dosage: UNK
     Dates: start: 20110920, end: 20110923
  36. BENFOTIAMINE [Concomitant]
     Indication: HYPOPHAGIA
     Dosage: UNK
     Dates: start: 20110927, end: 20111006
  37. ZOSYN [Concomitant]
     Indication: SEPSIS
     Dosage: UNK
     Dates: start: 20110929, end: 20111001
  38. CARPERITIDE [Concomitant]
     Indication: CARDIAC FAILURE CONGESTIVE
     Dosage: UNK
     Dates: start: 20110929, end: 20110929
  39. POTASSIUM CHLORIDE [Concomitant]
     Indication: HYPOPHAGIA
     Dosage: UNK
     Dates: start: 20110929, end: 20111006
  40. POTASSIUM CHLORIDE [Concomitant]
     Dosage: UNK
     Dates: start: 20111007, end: 20111012
  41. FRADIOMYCIN-GRAMICIDIN S [Concomitant]
     Indication: OROPHARYNGEAL PAIN
     Dosage: UNK
     Dates: start: 20110811, end: 20110816
  42. DIPHENHYDRAMINE HCL [Concomitant]
     Indication: PROPHYLAXIS
     Dosage: UNK
     Dates: start: 20110815, end: 20110819
  43. LEVOFLOXACIN [Concomitant]
     Indication: PROPHYLAXIS
     Dosage: UNK
     Dates: start: 20110815, end: 20110831
  44. INSULIN HUMAN [Concomitant]
     Indication: DIABETES MELLITUS
     Dosage: UNK
     Dates: start: 20110805, end: 20111019
  45. LENOGRASTIM [Concomitant]
     Indication: APLASTIC ANAEMIA
     Dosage: UNK
     Dates: start: 20110813, end: 20110906
  46. PAZUFLOXACIN [Concomitant]
     Indication: SEPSIS
     Dosage: UNK
     Dates: start: 20110922, end: 20110925
  47. VANCOMYCIN HCL [Concomitant]
     Indication: SEPSIS
     Dosage: UNK
     Dates: start: 20110924, end: 20110927
  48. AZTREONAM [Concomitant]
     Indication: PNEUMONIA
     Dosage: UNK
     Dates: start: 20110925, end: 20110929
  49. IMMUNE GLOBULIN NOS [Concomitant]
     Indication: INFECTION
     Dosage: UNK
     Dates: start: 20110926, end: 20110928
  50. DOPAMINE HYDROCHLORIDE [Concomitant]
     Indication: CARDIAC FAILURE
     Dosage: UNK
     Dates: start: 20110929, end: 20111004
  51. PROPOFOL [Concomitant]
     Indication: INSOMNIA
     Dosage: UNK
     Dates: start: 20111012, end: 20111015
  52. HYPERALIMENTATIVE BASIC SOLUTION [Concomitant]
     Indication: HYPOPHAGIA
     Dosage: UNK
     Dates: start: 20111013, end: 20111019
  53. MAINTENANCE MEDIUM WITH ACETIC ACID [Concomitant]
     Indication: HYPOPHAGIA
  54. FUROSEMIDE [Concomitant]
     Indication: CARDIAC FAILURE CONGESTIVE
     Dosage: UNK
     Dates: start: 20110927, end: 20111002
  55. SODIUM CHLORIDE [Concomitant]
     Indication: HYPOPHAGIA
     Dosage: UNK
     Dates: start: 20111013, end: 20111019
  56. AMPHOTERICIN B [Concomitant]
     Indication: SYSTEMIC MYCOSIS
     Dosage: UNK
     Dates: start: 20111016, end: 20111019
  57. BIFIDOBACTERIUM BIFIDUM [Concomitant]
     Indication: DIARRHOEA
     Dosage: UNK
     Dates: start: 20110807, end: 20111005
  58. BENIDIPINE HYDROCHLORIDE [Concomitant]
     Indication: HYPERTENSION
     Dosage: UNK
     Dates: start: 20111004, end: 20111004
  59. INSULIN HUMAN [Concomitant]
     Dosage: UNK
     Dates: start: 20110806, end: 20110821
  60. HYDROCORTISONE SODIUM SUCCINATE [Concomitant]
     Indication: PROPHYLAXIS
     Dosage: UNK
     Dates: start: 20110812, end: 20111019
  61. HALOPERIDOL [Concomitant]
     Indication: INSOMNIA
     Dosage: UNK
     Dates: start: 20111010, end: 20111010

REACTIONS (1)
  - EPSTEIN-BARR VIRUS ASSOCIATED LYMPHOPROLIFERATIVE DISORDER [None]
